FAERS Safety Report 17267419 (Version 3)
Quarter: 2021Q2

REPORT INFORMATION
  Report Type: Spontaneous
  Country: US (occurrence: US)
  Receive Date: 20200114
  Receipt Date: 20210519
  Transmission Date: 20210716
  Serious: No
  Sender: FDA-Public Use
  Company Number: US-SA-2020SA008835

PATIENT
  Age: 32 Year
  Sex: Male
  Weight: 90.7 kg

DRUGS (7)
  1. DUPIXENT [Suspect]
     Active Substance: DUPILUMAB
     Indication: DERMATITIS ALLERGIC
     Dosage: 300 MG, QOW
     Route: 058
     Dates: start: 201912
  2. DUPIXENT [Suspect]
     Active Substance: DUPILUMAB
     Indication: ECZEMA HERPETICUM
  3. LYSINE [Concomitant]
     Active Substance: LYSINE
  4. ALBUTEROL SULFATE HFA [Concomitant]
     Active Substance: ALBUTEROL SULFATE
  5. DUPIXENT [Suspect]
     Active Substance: DUPILUMAB
     Indication: ASTHMA
  6. DUPIXENT [Suspect]
     Active Substance: DUPILUMAB
     Indication: DERMATITIS ATOPIC
  7. FLONASE ALLERGY RELIEF [Concomitant]
     Active Substance: FLUTICASONE PROPIONATE

REACTIONS (14)
  - Rebound eczema [Unknown]
  - Eczema weeping [Unknown]
  - Product use in unapproved indication [Unknown]
  - Dermatitis atopic [Unknown]
  - Pruritus [Unknown]
  - Eye disorder [Unknown]
  - Eczema [Unknown]
  - Swelling [Unknown]
  - Skin fissures [Unknown]
  - Pustule [Unknown]
  - Skin exfoliation [Unknown]
  - Dry skin [Unknown]
  - Sleep disorder [Unknown]
  - Skin weeping [Unknown]

NARRATIVE: CASE EVENT DATE: 202004
